FAERS Safety Report 14489780 (Version 1)
Quarter: 2018Q1

REPORT INFORMATION
  Report Type: Spontaneous
  Country: US (occurrence: US)
  Receive Date: 20180205
  Receipt Date: 20180205
  Transmission Date: 20180509
  Serious: No
  Sender: FDA-Public Use
  Company Number: US-LUPIN PHARMACEUTICALS INC.-2017-07797

PATIENT
  Sex: Female
  Weight: 58.96 kg

DRUGS (2)
  1. DESOXIMETASONE CREAM USP, 0.05% [Suspect]
     Active Substance: DESOXIMETASONE
     Indication: RASH
     Dosage: OLD TUBE, QD, APPLICATION AT NIGHT
     Route: 061
     Dates: start: 20171016
  2. DESOXIMETASONE CREAM USP, 0.05% [Suspect]
     Active Substance: DESOXIMETASONE
     Dosage: NEW TUBE, QD, APPLICATION AT NIGHT
     Route: 061
     Dates: start: 20171115

REACTIONS (5)
  - Drug effect variable [Unknown]
  - Product leakage [Unknown]
  - Pruritus [Unknown]
  - Drug ineffective [Unknown]
  - Infection [Not Recovered/Not Resolved]
